FAERS Safety Report 4575772-6 (Version None)
Quarter: 2005Q1

REPORT INFORMATION
  Report Type: 
  Country: None (occurrence: None)
  Receive Date: 20050128
  Receipt Date: 20050128
  Transmission Date: 20050727
  Serious: Yes (Other)
  Sender: FDA-Public Use
  Company Number: None

PATIENT
  Age: 84 Year
  Sex: Female
  Weight: 74.8435 kg

DRUGS (4)
  1. PHENYTOIN [Suspect]
     Indication: CONVULSION
     Dosage: 200 MG (SEE IMAGE)
     Dates: start: 19990101, end: 20030101
  2. LASIX [Concomitant]
  3. ZANTAC [Concomitant]
  4. CLONIDINE [Concomitant]

REACTIONS (1)
  - CONVULSION [None]
